FAERS Safety Report 8522465-6 (Version None)
Quarter: 2012Q3

REPORT INFORMATION
  Report Type: 
  Country: None (occurrence: None)
  Receive Date: 20120719
  Receipt Date: 20120712
  Transmission Date: 20120928
  Serious: Yes (Death)
  Sender: FDA-Public Use
  Company Number: PH-BAXTER-2012BAX011319

PATIENT
  Sex: Male

DRUGS (6)
  1. CLONIDINE [Concomitant]
     Route: 065
  2. DIANEAL PD-2 W/ DEXTROSE 2.5% [Suspect]
     Route: 033
     Dates: start: 20120110
  3. FERROUS SULFATE TAB [Concomitant]
     Route: 065
  4. EPOGEN [Concomitant]
     Route: 065
  5. CATAPRES                           /00171101/ [Concomitant]
     Route: 065
  6. DIANEAL PD-2 W/ DEXTROSE 1.5% [Suspect]
     Route: 033
     Dates: start: 20120110

REACTIONS (1)
  - CARDIAC ARREST [None]
